FAERS Safety Report 9304013 (Version 2)
Quarter: 2014Q1

REPORT INFORMATION
  Report Type: Spontaneous
  Country: GB (occurrence: GB)
  Receive Date: 20130522
  Receipt Date: 20140127
  Transmission Date: 20141002
  Serious: Yes (Life-Threatening)
  Sender: FDA-Public Use
  Company Number: PHHY2013GB050189

PATIENT
  Age: 47 Year
  Sex: Male

DRUGS (7)
  1. METHOTREXATE [Suspect]
     Indication: PSORIASIS
     Dosage: UP TO 12.5MG
     Route: 048
     Dates: start: 20071110, end: 20110826
  2. SALBUTAMOL [Concomitant]
     Indication: ASTHMA
  3. NON-DRUG: PHOTOTHERAPY [Concomitant]
     Indication: PSORIASIS
  4. DOUBLEBASE [Concomitant]
     Indication: PSORIASIS
     Route: 061
     Dates: start: 20081024
  5. DERMOL [Concomitant]
     Indication: PSORIASIS
     Dosage: 1 DF, USED DAILY DERMOL WASH
     Route: 061
     Dates: start: 20070914, end: 20110826
  6. DOVOBET [Concomitant]
     Indication: PSORIASIS
     Dosage: 1 DF, PRN
     Route: 061
     Dates: start: 20071210, end: 20110826
  7. EUMOVATE [Concomitant]
     Indication: PSORIASIS
     Dosage: 2 DF, PRN
     Route: 061
     Dates: start: 20070914, end: 20110826

REACTIONS (1)
  - Tonsil cancer [Recovered/Resolved]
